FAERS Safety Report 6391623-1 (Version None)
Quarter: 2009Q4

REPORT INFORMATION
  Report Type: 
  Country: None (occurrence: None)
  Receive Date: 20091007
  Receipt Date: 20090717
  Transmission Date: 20100525
  Serious: Yes (Life-Threatening, Disabling, Other)
  Sender: FDA-Public Use
  Company Number: A0797526A

PATIENT
  Sex: Female

DRUGS (8)
  1. ADVAIR DISKUS 100/50 [Suspect]
     Indication: ASTHMA
     Dosage: 2PUFF TWICE PER DAY
     Route: 055
     Dates: start: 20080101
  2. VENTOLIN HFA [Concomitant]
  3. ZYFLO [Concomitant]
  4. OXYBUTYNIN CHLORIDE [Concomitant]
  5. PROTONIX [Concomitant]
  6. SYNTHROID [Concomitant]
  7. CALCIUM [Concomitant]
  8. EPINEPHRINE [Concomitant]

REACTIONS (4)
  - ASTHMA [None]
  - CANDIDIASIS [None]
  - DRUG INEFFECTIVE [None]
  - DYSPHONIA [None]
